FAERS Safety Report 7000296-6 (Version None)
Quarter: 2010Q3

REPORT INFORMATION
  Report Type: 
  Country: None (occurrence: None)
  Receive Date: 20100920
  Receipt Date: 20071015
  Transmission Date: 20110219
  Serious: Yes (Hospitalization, Other)
  Sender: FDA-Public Use
  Company Number: US-ASTRAZENECA-2006UW22839

PATIENT
  Age: 17403 Day
  Sex: Female
  Weight: 97.5 kg

DRUGS (15)
  1. SEROQUEL [Suspect]
     Indication: DEPRESSION
     Route: 048
     Dates: start: 20000101, end: 20060101
  2. SEROQUEL [Suspect]
     Indication: BIPOLAR DISORDER
     Route: 048
     Dates: start: 20000101, end: 20060101
  3. SEROQUEL [Suspect]
     Indication: ANXIETY
     Route: 048
     Dates: start: 20000101, end: 20060101
  4. SEROQUEL [Suspect]
     Indication: INSOMNIA
     Route: 048
     Dates: start: 20000101, end: 20060101
  5. SEROQUEL [Suspect]
     Dosage: 25 MG - 75 MG
     Route: 048
     Dates: start: 20020107
  6. SEROQUEL [Suspect]
     Dosage: 25 MG - 75 MG
     Route: 048
     Dates: start: 20020107
  7. SEROQUEL [Suspect]
     Dosage: 25 MG - 75 MG
     Route: 048
     Dates: start: 20020107
  8. SEROQUEL [Suspect]
     Dosage: 25 MG - 75 MG
     Route: 048
     Dates: start: 20020107
  9. REBETOL [Suspect]
     Indication: HEPATITIS C
     Dates: start: 20030504, end: 20030522
  10. INTERFERON [Suspect]
     Dates: start: 20030504, end: 20030522
  11. PROZAC [Concomitant]
     Indication: DEPRESSION
     Dosage: 20 - 40 MG
     Dates: start: 20021230
  12. BUSPIRONE HCL [Concomitant]
     Dates: start: 20030314
  13. WELLBUTRIN [Concomitant]
     Dosage: 100 - 300 MG
     Route: 048
     Dates: start: 20021230
  14. PROTONIX [Concomitant]
     Indication: GASTROOESOPHAGEAL REFLUX DISEASE
     Dates: start: 20021230
  15. XANAX [Concomitant]
     Indication: ANXIETY
     Dosage: 0.25-1.5 MG
     Dates: start: 20021230

REACTIONS (2)
  - PANCREATITIS [None]
  - PANCREATITIS ACUTE [None]
